FAERS Safety Report 6090504-0 (Version None)
Quarter: 2009Q1

REPORT INFORMATION
  Report Type: 
  Country: None (occurrence: None)
  Receive Date: 20090224
  Receipt Date: 20081231
  Transmission Date: 20090719
  Serious: No
  Sender: FDA-Public Use
  Company Number: US-ABBOTT-09P-163-0495624-00

PATIENT
  Sex: Male

DRUGS (3)
  1. SIMCOR [Suspect]
     Indication: DRUG USE FOR UNKNOWN INDICATION
     Dosage: 500/20MG
     Route: 048
     Dates: start: 20081201, end: 20081201
  2. FISH OIL [Concomitant]
     Indication: DRUG USE FOR UNKNOWN INDICATION
  3. OMEGA 50 [Concomitant]
     Indication: DRUG USE FOR UNKNOWN INDICATION

REACTIONS (2)
  - CONSTIPATION [None]
  - PAIN [None]
